FAERS Safety Report 7884772-X (Version None)
Quarter: 2011Q4

REPORT INFORMATION
  Report Type: 
  Country: None (occurrence: None)
  Receive Date: 20111102
  Receipt Date: 20111024
  Transmission Date: 20120403
  Serious: Yes (Hospitalization, Other)
  Sender: FDA-Public Use
  Company Number: US-BAYER-2011-089822

PATIENT
  Age: 52 Year
  Sex: Female
  Weight: 49.8 kg

DRUGS (17)
  1. PHENERGAN HCL [Concomitant]
  2. PREDNISONE [Concomitant]
     Dosage: 60 MG, UNK
     Route: 048
  3. CITALOPRAM HYDROBROMIDE [Concomitant]
     Dosage: 40 MG, QD
  4. CEPASTAT [Concomitant]
  5. SARGRAMOSTIM [Suspect]
     Dosage: 250 ?G, QD
     Route: 058
     Dates: start: 20110815, end: 20110828
  6. MDX-010 [Suspect]
     Indication: MALIGNANT MELANOMA OF SITES OTHER THAN SKIN
     Dosage: 10 MG/KG, ONCE
     Route: 042
     Dates: start: 20110906, end: 20110906
  7. MDX-010 [Suspect]
     Dosage: 10 MG/KG, ONCE
     Route: 042
     Dates: start: 20110725, end: 20110725
  8. FOSAMAX [Concomitant]
     Dosage: UNK UNK, OW
  9. RYNATAN [AZATADINE MALEATE,PSEUDOEPHEDRINE SULFATE] [Concomitant]
     Dosage: 5 MG, QD
  10. NEXIUM [Concomitant]
  11. COLACE [Concomitant]
  12. SARGRAMOSTIM [Suspect]
     Indication: MALIGNANT MELANOMA OF SITES OTHER THAN SKIN
     Dosage: 250 ?G, QD
     Route: 058
     Dates: start: 20110906
  13. MDX-010 [Suspect]
     Dosage: 10 MG/KG, ONCE
     Route: 042
     Dates: start: 20110815, end: 20110815
  14. FLONASE [Concomitant]
     Dosage: 2 SPRAYS BID
  15. ZOFRAN [Concomitant]
  16. CELEXA [Concomitant]
  17. SARGRAMOSTIM [Suspect]
     Dosage: 250 ?G, QD
     Route: 058
     Dates: start: 20110725, end: 20110807

REACTIONS (18)
  - DIARRHOEA [None]
  - PYREXIA [None]
  - AUTOIMMUNE DISORDER [None]
  - SYNCOPE [None]
  - HYPOALBUMINAEMIA [None]
  - COLITIS [None]
  - ANAEMIA [None]
  - WEIGHT DECREASED [None]
  - HYPERGLYCAEMIA [None]
  - ILEUS [None]
  - SMALL INTESTINAL OBSTRUCTION [None]
  - RENAL FAILURE [None]
  - HYPERKALAEMIA [None]
  - HYPOCALCAEMIA [None]
  - HYPOKALAEMIA [None]
  - TACHYCARDIA [None]
  - BLOOD CREATININE INCREASED [None]
  - CONSTIPATION [None]
